FAERS Safety Report 15798178 (Version 2)
Quarter: 2019Q1

REPORT INFORMATION
  Report Type: Spontaneous
  Country: US (occurrence: US)
  Receive Date: 20190108
  Receipt Date: 20190215
  Transmission Date: 20190417
  Serious: No
  Sender: FDA-Public Use
  Company Number: US-ASTRAZENECA-2018SF67305

PATIENT
  Sex: Male

DRUGS (1)
  1. BYDUREON [Suspect]
     Active Substance: EXENATIDE
     Dosage: 2.0MG UNKNOWN
     Route: 065

REACTIONS (7)
  - Intentional product misuse [Unknown]
  - Intentional device misuse [Unknown]
  - Blood glucose fluctuation [Unknown]
  - Product packaging quantity issue [Unknown]
  - Blood glucose increased [Not Recovered/Not Resolved]
  - Injection site extravasation [Unknown]
  - Wrong technique in device usage process [Unknown]
